FAERS Safety Report 16071800 (Version 2)
Quarter: 2019Q2

REPORT INFORMATION
  Report Type: Spontaneous
  Country: US (occurrence: US)
  Receive Date: 20190314
  Receipt Date: 20190430
  Transmission Date: 20190711
  Serious: Yes (Other)
  Sender: FDA-Public Use
  Company Number: US-009507513-1903USA002937

PATIENT
  Age: 26 Year
  Sex: Female
  Weight: 130.61 kg

DRUGS (1)
  1. NEXPLANON [Suspect]
     Active Substance: ETONOGESTREL
     Indication: CONTRACEPTION
     Dosage: 68 MILLIGRAM, ONCE
     Route: 059
     Dates: start: 20180402, end: 20190312

REACTIONS (7)
  - Limb operation [Unknown]
  - Implant site pain [Unknown]
  - Device breakage [Recovered/Resolved]
  - Muscle spasms [Unknown]
  - Oligomenorrhoea [Unknown]
  - Breast pain [Unknown]
  - Breast tenderness [Unknown]

NARRATIVE: CASE EVENT DATE: 2019
